FAERS Safety Report 9095747 (Version 2)
Quarter: 2013Q2

REPORT INFORMATION
  Report Type: Spontaneous
  Country: US (occurrence: None)
  Receive Date: 20120525
  Receipt Date: 20120827
  Transmission Date: 20140414
  Serious: Yes (Other)
  Sender: FDA-Public Use
  Company Number: 350327

PATIENT
  Age: 72 Year
  Sex: Female

DRUGS (6)
  1. VICTOZA (LIRAGLUTIDE) SOLUTION FOR INJECTION, 6 MG/ML [Suspect]
     Indication: TYPE 2 DIABETES MELLITUS
     Route: 058
  2. LIPITOR (ATORVASTATIN CALCIUM) [Concomitant]
  3. ACTOS (PIOGLITAZONE HYDROCHLORIDE) [Concomitant]
  4. LANTUS (INSULIN GLARGINE) [Concomitant]
  5. DIABEND (GLICLAZIDE) [Concomitant]
  6. DILTIAZEM [Concomitant]

REACTIONS (4)
  - Dyspnoea [None]
  - Abdominal pain upper [None]
  - Abdominal pain [None]
  - Diarrhoea [None]
